FAERS Safety Report 4446745-9 (Version None)
Quarter: 2004Q3

REPORT INFORMATION
  Report Type: 
  Country: None (occurrence: None)
  Receive Date: 20040910
  Receipt Date: 20040826
  Transmission Date: 20050211
  Serious: Yes (Life-Threatening, Hospitalization, Disabling)
  Sender: FDA-Public Use
  Company Number: 2004059880

PATIENT
  Age: 31 Year
  Sex: Female

DRUGS (3)
  1. ZELDOX [Suspect]
     Indication: SCHIZOPHRENIA
     Dosage: 80 MG
     Dates: start: 20040601
  2. FLUPENTIXOL (FLUPENTIXOL) [Concomitant]
  3. BIPERIDEN (BIPERIDEN) [Concomitant]

REACTIONS (1)
  - PHLEBOTHROMBOSIS [None]
